FAERS Safety Report 7319040-8 (Version None)
Quarter: 2011Q1

REPORT INFORMATION
  Report Type: 
  Country: None (occurrence: None)
  Receive Date: 20110223
  Receipt Date: 20110223
  Transmission Date: 20110831
  Serious: Yes (Hospitalization, Disabling)
  Sender: FDA-Public Use
  Company Number: None

PATIENT
  Age: 24 Year
  Sex: Female
  Weight: 88.4514 kg

DRUGS (1)
  1. MIRENA [Suspect]
     Indication: CONTRACEPTION
     Dates: start: 20100615, end: 20110218

REACTIONS (5)
  - SCAR [None]
  - UTERINE PERFORATION [None]
  - METRORRHAGIA [None]
  - ABDOMINAL PAIN [None]
  - DEVICE DISLOCATION [None]
